FAERS Safety Report 12680090 (Version 1)
Quarter: 2016Q3

REPORT INFORMATION
  Report Type: Spontaneous
  Country: US (occurrence: None)
  Receive Date: 20160823
  Receipt Date: 20160823
  Transmission Date: 20161109
  Serious: Yes (Hospitalization)
  Sender: FDA-Public Use
  Company Number: None

PATIENT
  Age: 81 Year
  Sex: Male
  Weight: 74.6 kg

DRUGS (1)
  1. CHLORTHALIDONE. [Suspect]
     Active Substance: CHLORTHALIDONE
     Indication: HYPERTENSION
     Route: 048
     Dates: start: 20100608, end: 20160605

REACTIONS (15)
  - Hypomagnesaemia [None]
  - Vomiting [None]
  - Constipation [None]
  - Decreased appetite [None]
  - Blood electrolytes abnormal [None]
  - Hypokalaemia [None]
  - Diarrhoea [None]
  - Hypophagia [None]
  - Hyponatraemia [None]
  - Hypotension [None]
  - Nausea [None]
  - Urine output decreased [None]
  - Dizziness [None]
  - Headache [None]
  - Dehydration [None]

NARRATIVE: CASE EVENT DATE: 20160605
